FAERS Safety Report 12405090 (Version 1)
Quarter: 2016Q2

REPORT INFORMATION
  Report Type: Spontaneous
  Country: IL (occurrence: IL)
  Receive Date: 20160525
  Receipt Date: 20160525
  Transmission Date: 20160815
  Serious: Yes (Hospitalization, Other)
  Sender: FDA-Public Use
  Company Number: IL-WATSON-2016-10768

PATIENT
  Age: 73 Year
  Sex: Male

DRUGS (1)
  1. ACARBOSE (UNKNOWN) [Suspect]
     Active Substance: ACARBOSE
     Indication: TYPE 2 DIABETES MELLITUS
     Dosage: 50 MG, Q8H
     Route: 065

REACTIONS (3)
  - Metabolic acidosis [Recovered/Resolved]
  - Renal impairment [Recovered/Resolved]
  - Pneumatosis intestinalis [Recovered/Resolved]
